FAERS Safety Report 14295470 (Version 6)
Quarter: 2019Q1

REPORT INFORMATION
  Report Type: Spontaneous
  Country: US (occurrence: US)
  Receive Date: 20171218
  Receipt Date: 20190221
  Transmission Date: 20190417
  Serious: No
  Sender: FDA-Public Use
  Company Number: US-PFIZER INC-2017534624

PATIENT
  Age: 69 Year
  Sex: Male
  Weight: 109 kg

DRUGS (5)
  1. METHOTREXATE. [Concomitant]
     Active Substance: METHOTREXATE
     Dosage: 6 DF, WEEKLY (6 TABLETS EVERY SUNDAY)
     Route: 048
  2. FOLIC ACID. [Concomitant]
     Active Substance: FOLIC ACID
     Indication: SUPPLEMENTATION THERAPY
     Dosage: 2 MG, 1X/DAY
     Dates: start: 2007
  3. XELJANZ XR [Suspect]
     Active Substance: TOFACITINIB CITRATE
     Dosage: 11 MG, 1X/DAY
     Route: 048
  4. METHOTREXATE. [Concomitant]
     Active Substance: METHOTREXATE
     Indication: RHEUMATOID ARTHRITIS
     Dosage: 15 MG, WEEKLY (ON SUNDAY NIGHT, WEEKLY)
     Dates: start: 2007
  5. XELJANZ XR [Suspect]
     Active Substance: TOFACITINIB CITRATE
     Indication: RHEUMATOID ARTHRITIS
     Dosage: 11 MG, 1X/DAY
     Route: 048
     Dates: start: 201710

REACTIONS (7)
  - Lip pain [Not Recovered/Not Resolved]
  - Penile blister [Not Recovered/Not Resolved]
  - Stomatitis [Recovering/Resolving]
  - Infection [Unknown]
  - Immune system disorder [Unknown]
  - Oral discomfort [Not Recovered/Not Resolved]
  - Lip blister [Recovering/Resolving]

NARRATIVE: CASE EVENT DATE: 201711
